FAERS Safety Report 12880905 (Version 1)
Quarter: 2016Q4

REPORT INFORMATION
  Report Type: Spontaneous
  Country: US (occurrence: None)
  Receive Date: 20161024
  Receipt Date: 20161024
  Transmission Date: 20170207
  Serious: Yes (Congenital Anomaly, Other)
  Sender: FDA-Public Use
  Company Number: US2016K6064LIT

PATIENT
  Age: 4 Year

DRUGS (1)
  1. ENALAPRIL WORLD (ENALAPRIL) UNKNOWN [Suspect]
     Active Substance: ENALAPRIL
     Indication: HYPERTENSION
     Route: 064

REACTIONS (2)
  - Foetal disorder [None]
  - Maternal drugs affecting foetus [None]
